FAERS Safety Report 8988704 (Version 1)
Quarter: 2012Q4

REPORT INFORMATION
  Report Type: Report from Study
  Country: JP (occurrence: JP)
  Receive Date: 20121228
  Receipt Date: 20121228
  Transmission Date: 20130627
  Serious: Yes (Other)
  Sender: FDA-Public Use
  Company Number: PHHY2011JP31365

PATIENT
  Age: 72 Year
  Sex: Male

DRUGS (5)
  1. AMN107 [Suspect]
     Indication: CHRONIC MYELOID LEUKAEMIA
     Dosage: 800 mg, daily
     Route: 048
     Dates: start: 20100526, end: 20100604
  2. AMN107 [Suspect]
     Dosage: 400 mg, daily
     Route: 048
     Dates: start: 20100605, end: 20100605
  3. DIOVAN [Concomitant]
     Dosage: 40 mg, UNK
     Route: 048
     Dates: start: 20100526
  4. GASTER [Concomitant]
     Dosage: 20 mg, UNK
     Route: 048
     Dates: start: 20100526
  5. LENDORMIN [Concomitant]
     Dosage: 0.5 mg, UNK
     Route: 048
     Dates: start: 20100526

REACTIONS (1)
  - Hyperuricaemia [Recovered/Resolved]
